FAERS Safety Report 14866068 (Version 1)
Quarter: 2018Q2

REPORT INFORMATION
  Report Type: Spontaneous
  Country: US (occurrence: US)
  Receive Date: 20180508
  Receipt Date: 20180508
  Transmission Date: 20180711
  Serious: No
  Sender: FDA-Public Use
  Company Number: US-ROCHE-2077694

PATIENT
  Age: 67 Year
  Sex: Female

DRUGS (1)
  1. ESBRIET [Suspect]
     Active Substance: PIRFENIDONE
     Indication: IDIOPATHIC PULMONARY FIBROSIS
     Dosage: 3TABLETS 3X DAILY
     Route: 048
     Dates: start: 20171116

REACTIONS (2)
  - Pain [Unknown]
  - Trichoglossia [Unknown]

NARRATIVE: CASE EVENT DATE: 20180202
